FAERS Safety Report 8810672 (Version 1)
Quarter: 2012Q4

REPORT INFORMATION
  Report Type: Spontaneous
  Country: US (occurrence: None)
  Receive Date: 20120924
  Receipt Date: 20120924
  Transmission Date: 20130627
  Serious: Yes (Hospitalization)
  Sender: FDA-Public Use
  Company Number: None

PATIENT
  Age: 57 Year
  Sex: Male
  Weight: 74.84 kg

DRUGS (2)
  1. COPAXONE [Suspect]
     Indication: MS
     Dates: start: 20120904, end: 20120904
  2. COPAXONE [Suspect]
     Indication: MS
     Dates: start: 20120905, end: 20120905

REACTIONS (3)
  - Headache [None]
  - Nausea [None]
  - Abnormal sensation in eye [None]
